FAERS Safety Report 7098574-8 (Version None)
Quarter: 2010Q4

REPORT INFORMATION
  Report Type: 
  Country: None (occurrence: None)
  Receive Date: 20101112
  Receipt Date: 20101102
  Transmission Date: 20110411
  Serious: Yes (Other)
  Sender: FDA-Public Use
  Company Number: PHHY2010CA74725

PATIENT

DRUGS (7)
  1. ALISKIREN ALI+ [Suspect]
     Indication: HYPERTENSION
     Dosage: 150 MG DAILY
     Route: 048
     Dates: start: 20100713
  2. ALISKIREN ALI+ [Suspect]
     Dosage: 300 MG DAILY
     Dates: start: 20100801, end: 20101016
  3. ATACAND [Concomitant]
     Dosage: 32 MG, BID
     Route: 048
  4. EZETROL [Concomitant]
     Dosage: 10 MG
     Route: 048
  5. SYNTHROID [Concomitant]
     Dosage: 80 NG
     Route: 048
  6. BISOPROLOL FUMARATE [Concomitant]
     Dosage: UNK
  7. SIMVASTATIN [Concomitant]
     Dosage: 40 MG
     Route: 048

REACTIONS (2)
  - BLOOD CREATININE INCREASED [None]
  - GLOMERULAR FILTRATION RATE DECREASED [None]
